FAERS Safety Report 6683024-3 (Version None)
Quarter: 2010Q2

REPORT INFORMATION
  Report Type: 
  Country: None (occurrence: None)
  Receive Date: 20100415
  Receipt Date: 20100405
  Transmission Date: 20101027
  Serious: Yes (Other)
  Sender: FDA-Public Use
  Company Number: US-GENZYME-CERZ-1000961

PATIENT

DRUGS (2)
  1. CEREZYME [Suspect]
     Indication: GAUCHER'S DISEASE
     Dosage: 1000 U, 1X/W
     Route: 042
     Dates: start: 19950905
  2. VICODIN [Concomitant]
     Indication: PAIN
     Dosage: 12 OTHER, QD
     Route: 048

REACTIONS (4)
  - ABASIA [None]
  - LOWER LIMB FRACTURE [None]
  - PAIN [None]
  - PLATELET COUNT DECREASED [None]
